FAERS Safety Report 25432367 (Version 2)
Quarter: 2025Q2

REPORT INFORMATION
  Report Type: Spontaneous
  Country: US (occurrence: US)
  Receive Date: 20250613
  Receipt Date: 20250621
  Transmission Date: 20250717
  Serious: Yes (Life-Threatening, Hospitalization, Other)
  Sender: ACCORD
  Company Number: US-Accord-489644

PATIENT
  Age: 34 Year
  Sex: Female

DRUGS (4)
  1. BUPROPION HYDROCHLORIDE [Interacting]
     Active Substance: BUPROPION HYDROCHLORIDE
     Indication: Anxiety
  2. FLUOXETINE [Interacting]
     Active Substance: FLUOXETINE HYDROCHLORIDE
     Indication: Anxiety
  3. PROPOFOL [Interacting]
     Active Substance: PROPOFOL
     Indication: Induction and maintenance of anaesthesia
  4. PROPOFOL [Interacting]
     Active Substance: PROPOFOL
     Indication: Induction and maintenance of anaesthesia

REACTIONS (4)
  - Drug interaction [Unknown]
  - Serotonin syndrome [Recovered/Resolved]
  - Antidepressant drug level increased [Unknown]
  - Off label use [Unknown]
